FAERS Safety Report 9110828 (Version 1)
Quarter: 2013Q1

REPORT INFORMATION
  Report Type: Spontaneous
  Country: US (occurrence: US)
  Receive Date: 20130219
  Receipt Date: 20130219
  Transmission Date: 20140127
  Serious: No
  Sender: FDA-Public Use
  Company Number: US-BRISTOL-MYERS SQUIBB COMPANY-17080292

PATIENT
  Age: 70 Year
  Sex: Male
  Weight: 112.47 kg

DRUGS (27)
  1. ABATACEPT SUBQ INJECTION 125MG/ML [Suspect]
     Indication: RHEUMATOID ARTHRITIS
     Route: 058
     Dates: start: 2012
  2. METHOTREXATE [Concomitant]
  3. PLAQUENIL [Concomitant]
  4. PREDNISONE [Concomitant]
  5. REQUIP [Concomitant]
  6. VICODIN [Concomitant]
  7. POTASSIUM [Concomitant]
  8. TORSEMIDE [Concomitant]
  9. GABAPENTIN [Concomitant]
  10. LISINOPRIL [Concomitant]
  11. OMEPRAZOLE [Concomitant]
  12. VERAPAMIL [Concomitant]
  13. COLACE [Concomitant]
  14. VITAMIN C [Concomitant]
  15. VITAMIN D3 [Concomitant]
  16. VITAMIN B1 [Concomitant]
  17. VITAMIN B2 [Concomitant]
  18. VITAMIN B6 [Concomitant]
  19. VITAMIN B12 [Concomitant]
  20. MULTIVITAMIN [Concomitant]
  21. OSCAL [Concomitant]
  22. OSTEO BI-FLEX [Concomitant]
  23. GLUCOSAMINE [Concomitant]
  24. ETANERCEPT [Concomitant]
  25. FOLIC ACID [Concomitant]
  26. CYANOCOBALAMIN [Concomitant]
  27. OMEGA 3 FISH OIL [Concomitant]

REACTIONS (1)
  - Drug ineffective [Unknown]
